FAERS Safety Report 7941347-1 (Version None)
Quarter: 2011Q4

REPORT INFORMATION
  Report Type: 
  Country: None (occurrence: None)
  Receive Date: 20111122
  Receipt Date: 20111122
  Transmission Date: 20120403
  Serious: Yes (Hospitalization)
  Sender: FDA-Public Use
  Company Number: None

PATIENT
  Sex: Female
  Weight: 53.0709 kg

DRUGS (1)
  1. NITROFURANTOIN MONO/MAC 100 MG 1 , 12 HRS PO [Suspect]
     Indication: CYSTITIS
     Dosage: 100 MG 1 , 12 HRS PO
     Route: 048
     Dates: start: 20110901, end: 20110910

REACTIONS (9)
  - ATRIAL FIBRILLATION [None]
  - PLEURAL EFFUSION [None]
  - CONSTIPATION [None]
  - ATRIAL FLUTTER [None]
  - DERMATITIS ALLERGIC [None]
  - DERMATITIS INFECTED [None]
  - ABDOMINAL DISTENSION [None]
  - FLATULENCE [None]
  - ABDOMINAL PAIN UPPER [None]
